FAERS Safety Report 9675150 (Version 1)
Quarter: 2013Q4

REPORT INFORMATION
  Report Type: Spontaneous
  Country: US (occurrence: None)
  Receive Date: 20131106
  Receipt Date: 20131106
  Transmission Date: 20140711
  Serious: Yes (Life-Threatening, Hospitalization, Disabling, Other)
  Sender: FDA-Public Use
  Company Number: None

PATIENT
  Age: 56 Year
  Sex: Female
  Weight: 85.28 kg

DRUGS (7)
  1. TERBINAFINE [Suspect]
     Indication: ONYCHOMYCOSIS
     Dosage: 250 MG  1 TABLET  DAILY  BY MOUTH
     Route: 048
     Dates: start: 20120613, end: 20121011
  2. SYMBICORT [Concomitant]
  3. NASONEX [Concomitant]
  4. LORAZEPAM [Concomitant]
  5. SENNA [Concomitant]
  6. ZRYTEC [Concomitant]
  7. DOCUSATE SODIUM [Concomitant]

REACTIONS (1)
  - Bile duct cancer [None]
